FAERS Safety Report 19096135 (Version 1)
Quarter: 2021Q2

REPORT INFORMATION
  Report Type: Spontaneous
  Country: US (occurrence: US)
  Receive Date: 20210406
  Receipt Date: 20210406
  Transmission Date: 20210717
  Serious: Yes (Other)
  Sender: FDA-Public Use
  Company Number: US-ROCHE-2784236

PATIENT
  Age: 43 Year
  Sex: Female

DRUGS (2)
  1. LIORESAL [Concomitant]
     Active Substance: BACLOFEN
     Indication: MUSCLE SPASMS
     Route: 048
     Dates: start: 20201118
  2. OCREVUS [Suspect]
     Active Substance: OCRELIZUMAB
     Indication: MULTIPLE SCLEROSIS
     Dosage: LAST INFUSION: 25/AUG/2020
     Route: 042
     Dates: start: 20200811

REACTIONS (4)
  - Multiple sclerosis relapse [Unknown]
  - Multiple sclerosis [Unknown]
  - Myelitis transverse [Unknown]
  - Muscular weakness [Recovering/Resolving]

NARRATIVE: CASE EVENT DATE: 202011
